FAERS Safety Report 7900214-X (Version None)
Quarter: 2011Q4

REPORT INFORMATION
  Report Type: 
  Country: None (occurrence: None)
  Receive Date: 20111101
  Receipt Date: 20110628
  Transmission Date: 20120403
  Serious: Yes (Other)
  Sender: FDA-Public Use
  Company Number: 288394USA

PATIENT
  Sex: Female

DRUGS (1)
  1. CLONAZEPAM [Suspect]
     Indication: ANXIETY
     Dosage: (0.5 MG)
     Dates: start: 20110101

REACTIONS (5)
  - DRUG INEFFECTIVE [None]
  - CARDIAC FLUTTER [None]
  - ANXIETY [None]
  - NAUSEA [None]
  - DRUG WITHDRAWAL SYNDROME [None]
